FAERS Safety Report 7096223-6 (Version None)
Quarter: 2010Q4

REPORT INFORMATION
  Report Type: 
  Country: None (occurrence: None)
  Receive Date: 20101109
  Receipt Date: 20101109
  Transmission Date: 20110411
  Serious: Yes (Other)
  Sender: FDA-Public Use
  Company Number: None

PATIENT
  Age: 7 Year
  Sex: Female
  Weight: 23.1334 kg

DRUGS (1)
  1. SINGULAIR [Suspect]
     Indication: ASTHMA
     Dosage: 1 TABLET DAILY PO SEASONAL
     Route: 048
     Dates: start: 20080101, end: 20100101

REACTIONS (9)
  - ABDOMINAL PAIN UPPER [None]
  - AGGRESSION [None]
  - EAR PAIN [None]
  - EPISTAXIS [None]
  - INSOMNIA [None]
  - OROPHARYNGEAL PAIN [None]
  - RASH [None]
  - SLEEP TERROR [None]
  - SOMNAMBULISM [None]
